FAERS Safety Report 14497613 (Version 1)
Quarter: 2018Q1

REPORT INFORMATION
  Report Type: Spontaneous
  Country: US (occurrence: US)
  Receive Date: 20180207
  Receipt Date: 20180207
  Transmission Date: 20180509
  Serious: Yes (Death, Hospitalization)
  Sender: FDA-Public Use
  Company Number: US-BAYER-2017-246265

PATIENT
  Age: 56 Year
  Sex: Male

DRUGS (3)
  1. XARELTO [Suspect]
     Active Substance: RIVAROXABAN
     Indication: ANGIOPATHY
     Dosage: 20 MG, UNK
     Route: 048
     Dates: start: 2015, end: 201502
  2. XARELTO [Suspect]
     Active Substance: RIVAROXABAN
     Indication: CORONARY ARTERY DISEASE
     Dosage: 20 MG, UNK
     Route: 048
     Dates: start: 20141121, end: 20150128
  3. BAYER ASPIRIN [Suspect]
     Active Substance: ASPIRIN
     Indication: PRODUCT USED FOR UNKNOWN INDICATION
     Dosage: 81 MG, UNK
     Route: 048
     Dates: end: 201502

REACTIONS (8)
  - Acute myocardial infarction [Recovering/Resolving]
  - Thrombocytopenia [Recovering/Resolving]
  - Haemorrhagic diathesis [Recovering/Resolving]
  - Product use in unapproved indication [Unknown]
  - Vertebral artery dissection [Fatal]
  - Gingival bleeding [Recovering/Resolving]
  - Off label use [Unknown]
  - Subarachnoid haemorrhage [Fatal]

NARRATIVE: CASE EVENT DATE: 20141121
